FAERS Safety Report 9803834 (Version 1)
Quarter: 2014Q1

REPORT INFORMATION
  Report Type: Spontaneous
  Country: US (occurrence: US)
  Receive Date: 20140108
  Receipt Date: 20140108
  Transmission Date: 20141002
  Serious: No
  Sender: FDA-Public Use
  Company Number: US-GLAXOSMITHKLINE-A1045926A

PATIENT
  Sex: Female

DRUGS (10)
  1. LOVAZA [Suspect]
     Indication: BLOOD TRIGLYCERIDES INCREASED
     Dosage: 12CAP PER DAY
     Route: 048
     Dates: start: 2009
  2. DIABETES MEDICATION [Concomitant]
  3. NEURONTIN [Concomitant]
  4. CYMBALTA [Concomitant]
  5. HUMIRA [Concomitant]
  6. HYDROCODONE [Concomitant]
  7. ONGLYZA [Concomitant]
  8. DIURETIC [Concomitant]
  9. ATORVASTATIN [Concomitant]
  10. AMLODIPINE [Concomitant]

REACTIONS (2)
  - Overdose [Unknown]
  - Therapeutic response unexpected [Unknown]
